FAERS Safety Report 24563752 (Version 5)
Quarter: 2025Q1

REPORT INFORMATION
  Report Type: Spontaneous
  Country: US (occurrence: US)
  Receive Date: 20241030
  Receipt Date: 20250102
  Transmission Date: 20250408
  Serious: No
  Sender: ROCHE
  Company Number: US-ROCHE-10000115178

PATIENT
  Age: 60 Year
  Sex: Male

DRUGS (5)
  1. ZELBORAF [Suspect]
     Active Substance: VEMURAFENIB
     Indication: Malignant melanoma
     Dosage: TAKE 4 TABLETS, 960MG BY MOUTH EVERY 12 HOURS ON DAYS 1-21, THEN DECREASE TO 3 TABLETS, 270MG EVERY
     Route: 048
     Dates: start: 202406
  2. COTELLIC [Suspect]
     Active Substance: COBIMETINIB FUMARATE
     Indication: Malignant melanoma
     Dosage: MOST RECENT DOSE 11-JUL-2024
     Route: 048
     Dates: start: 202406
  3. TECENTRIQ [Concomitant]
     Active Substance: ATEZOLIZUMAB
  4. LUPRON [Concomitant]
     Active Substance: LEUPROLIDE ACETATE
  5. XGEVA [Concomitant]
     Active Substance: DENOSUMAB

REACTIONS (5)
  - Haemorrhage [Unknown]
  - Contusion [Unknown]
  - Sensitive skin [Unknown]
  - Skin atrophy [Unknown]
  - Rash [Recovering/Resolving]

NARRATIVE: CASE EVENT DATE: 20240729
